FAERS Safety Report 8659670 (Version 2)
Quarter: 2012Q4

REPORT INFORMATION
  Report Type: Report from Study
  Country: JP (occurrence: JP)
  Receive Date: 20120711
  Receipt Date: 20120924
  Transmission Date: 20130627
  Serious: Yes (Other)
  Sender: FDA-Public Use
  Company Number: JP-NAPPMUNDI-MAG-2012-0002218

PATIENT
  Age: 79 Year
  Sex: Female
  Weight: 60 kg

DRUGS (5)
  1. BUPRENORPHINE TRANSDERMAL SYSTEM [Suspect]
     Indication: ANALGESIC THERAPY
     Dosage: 5 mcg, q1h
     Route: 062
     Dates: start: 20120605, end: 20120612
  2. BUPRENORPHINE TRANSDERMAL SYSTEM [Suspect]
     Dosage: 10 mcg, q1h
     Route: 062
     Dates: start: 20120327, end: 20120604
  3. BUPRENORPHINE TRANSDERMAL SYSTEM [Suspect]
     Dosage: 5 mcg, q1h
     Route: 062
     Dates: start: 20120313, end: 20120326
  4. ARTZ [Concomitant]
     Indication: OSTEOARTHRITIS
     Dosage: UNK
     Route: 042
     Dates: start: 20110614
  5. ARTZ [Concomitant]
     Indication: SPINAL OSTEOARTHRITIS

REACTIONS (4)
  - Fall [Recovering/Resolving]
  - Constipation [Recovered/Resolved]
  - Somnolence [Recovered/Resolved]
  - Dizziness [Recovered/Resolved]
